FAERS Safety Report 9281249 (Version 2)
Quarter: 2013Q3

REPORT INFORMATION
  Report Type: Spontaneous
  Country: CN (occurrence: CN)
  Receive Date: 20130509
  Receipt Date: 20130722
  Transmission Date: 20140515
  Serious: Yes (Hospitalization, Other)
  Sender: FDA-Public Use
  Company Number: CN-PFIZER INC-2013137847

PATIENT
  Age: 22 Year
  Sex: Female

DRUGS (2)
  1. IBUPROFEN [Suspect]
     Indication: PYREXIA
     Dosage: 400 MG, UNK
     Route: 048
     Dates: start: 201206, end: 20120731
  2. NIMESULIDE [Suspect]
     Indication: PYREXIA
     Dosage: 100 MG, UNK
     Route: 048
     Dates: start: 201206, end: 20120731

REACTIONS (2)
  - Drug-induced liver injury [Recovered/Resolved]
  - Hepatic failure [Recovered/Resolved]
